FAERS Safety Report 12412604 (Version 2)
Quarter: 2016Q2

REPORT INFORMATION
  Report Type: Report from Study
  Country: IT (occurrence: IT)
  Receive Date: 20160527
  Receipt Date: 20160609
  Transmission Date: 20160815
  Serious: Yes (Hospitalization)
  Sender: FDA-Public Use
  Company Number: IT-PFIZER INC-2016269725

PATIENT
  Age: 68 Year
  Sex: Female
  Weight: 64 kg

DRUGS (17)
  1. DOXORUBICIN HCL [Suspect]
     Active Substance: DOXORUBICIN HYDROCHLORIDE
     Indication: DIFFUSE LARGE B-CELL LYMPHOMA
     Dosage: 81.5 MG, 1 IN 21 DAYS
     Route: 042
     Dates: start: 20160303
  2. RITUXIMAB [Suspect]
     Active Substance: RITUXIMAB
     Indication: DIFFUSE LARGE B-CELL LYMPHOMA
     Dosage: 611 MG/M2, 1 IN 21 DAYS
     Route: 042
     Dates: start: 20160303
  3. PREDNISONE. [Suspect]
     Active Substance: PREDNISONE
     Dosage: 100 MG, 5 IN 21 DAYS
     Route: 048
     Dates: start: 20160324
  4. CLEXANE [Concomitant]
     Active Substance: ENOXAPARIN SODIUM
     Dosage: UNK
     Route: 048
     Dates: start: 20160303
  5. DOXORUBICIN HCL [Suspect]
     Active Substance: DOXORUBICIN HYDROCHLORIDE
     Dosage: 81.5 MG, 1 IN 21 DAYS
     Route: 042
     Dates: start: 20160324
  6. BLINDED THERAPY [Suspect]
     Active Substance: INVESTIGATIONAL PRODUCT
     Indication: DIFFUSE LARGE B-CELL LYMPHOMA
     Dosage: 15 MG, 14 IN 21 DAYS
     Route: 048
     Dates: start: 20160304
  7. BLINDED THERAPY [Suspect]
     Active Substance: INVESTIGATIONAL PRODUCT
     Dosage: 15 MG, 14 IN 21 DAYS
     Route: 048
     Dates: start: 20160324, end: 20160402
  8. CYCLOPHOSPHAMIDE. [Suspect]
     Active Substance: CYCLOPHOSPHAMIDE
     Indication: DIFFUSE LARGE B-CELL LYMPHOMA
     Dosage: 1222 MG, 1 IN 21 DAYS
     Route: 042
     Dates: start: 20160303
  9. RITUXIMAB [Suspect]
     Active Substance: RITUXIMAB
     Dosage: 611 MG/M2, 1 IN 21 DAYS
     Route: 042
     Dates: start: 20160324
  10. ERYTHROPOIETIN [Concomitant]
     Active Substance: ERYTHROPOIETIN
     Indication: ANAEMIA
     Dosage: 10000 IU, 1 IN 1 WK
     Route: 058
     Dates: start: 20160331
  11. FILGRASTIM [Concomitant]
     Active Substance: FILGRASTIM
     Indication: NEUTROPENIA
     Dosage: UNK
     Route: 058
     Dates: start: 20160329
  12. BACTRIM [Concomitant]
     Active Substance: SULFAMETHOXAZOLE\TRIMETHOPRIM
     Indication: PROPHYLAXIS
     Dosage: 320 MG, 2 IN 1 DAY
     Route: 048
  13. CYCLOPHOSPHAMIDE. [Suspect]
     Active Substance: CYCLOPHOSPHAMIDE
     Dosage: 1222 MG, 1 IN 21 DAYS
     Route: 042
     Dates: start: 20160324
  14. PANTORC [Concomitant]
     Active Substance: PANTOPRAZOLE SODIUM
     Indication: GASTRITIS PROPHYLAXIS
     Dosage: UNK
     Route: 048
  15. VINCRISTINE SULFATE. [Suspect]
     Active Substance: VINCRISTINE SULFATE
     Dosage: 2 MG, CYCLIC 1 IN 21 DAYS
     Route: 042
     Dates: start: 20160324
  16. PREDNISONE. [Suspect]
     Active Substance: PREDNISONE
     Indication: DIFFUSE LARGE B-CELL LYMPHOMA
     Dosage: 100 MG, 5 IN 21 DAYS
     Route: 048
     Dates: start: 20160303
  17. VINCRISTINE SULFATE. [Suspect]
     Active Substance: VINCRISTINE SULFATE
     Indication: DIFFUSE LARGE B-CELL LYMPHOMA
     Dosage: 2 MG, 1 IN 21 DAYS
     Route: 042
     Dates: start: 20160303

REACTIONS (2)
  - Sepsis [Recovered/Resolved]
  - Cytomegalovirus infection [Recovered/Resolved]

NARRATIVE: CASE EVENT DATE: 20160402
